FAERS Safety Report 6463611-8 (Version None)
Quarter: 2009Q4

REPORT INFORMATION
  Report Type: 
  Country: None (occurrence: None)
  Receive Date: 20091201
  Receipt Date: 20091117
  Transmission Date: 20100525
  Serious: Yes (Other)
  Sender: FDA-Public Use
  Company Number: PHHY2009FR51005

PATIENT
  Age: 40 Year
  Sex: Female

DRUGS (2)
  1. EXTAVIA [Suspect]
     Indication: MULTIPLE SCLEROSIS
     Dosage: 2 ML, QOD
     Dates: start: 20091012
  2. ESOMEPRAZOLE [Concomitant]
     Dosage: UNK
     Dates: start: 20091115

REACTIONS (4)
  - ERYTHEMA [None]
  - FEELING HOT [None]
  - SKIN LESION [None]
  - URTICARIA [None]
